FAERS Safety Report 5815862-0 (Version None)
Quarter: 2008Q3

REPORT INFORMATION
  Report Type: 
  Country: None (occurrence: None)
  Receive Date: 20080721
  Receipt Date: 20080618
  Transmission Date: 20090109
  Serious: No
  Sender: FDA-Public Use
  Company Number: US-BAYER-200816995NA

PATIENT
  Age: 25 Year
  Sex: Female
  Weight: 59 kg

DRUGS (1)
  1. YAZ [Suspect]
     Route: 048
     Dates: start: 20071001, end: 20080101

REACTIONS (1)
  - ALOPECIA [None]
